FAERS Safety Report 20397782 (Version 2)
Quarter: 2022Q1

REPORT INFORMATION
  Report Type: Spontaneous
  Country: US (occurrence: US)
  Receive Date: 20220131
  Receipt Date: 20220201
  Transmission Date: 20220424
  Serious: No
  Sender: FDA-Public Use
  Company Number: US-ABBVIE-21K-163-3782818-00

PATIENT
  Age: 69 Year
  Sex: Male
  Weight: 83.990 kg

DRUGS (5)
  1. HUMIRA [Suspect]
     Active Substance: ADALIMUMAB
     Indication: Ankylosing spondylitis
     Route: 058
     Dates: start: 201710
  2. HYDROCHLOROTHIAZIDE [Concomitant]
     Active Substance: HYDROCHLOROTHIAZIDE
     Indication: Hypertension
  3. IBUPROFEN [Concomitant]
     Active Substance: IBUPROFEN
     Indication: Pain
  4. VITAMIN D NOS [Concomitant]
     Active Substance: VITAMIN D NOS
     Indication: Supplementation therapy
  5. COVID-19 VACCINE [Concomitant]
     Indication: COVID-19 immunisation
     Dosage: PFIZER MANUFACTURER
     Dates: start: 20210203

REACTIONS (3)
  - Injection site haemorrhage [Recovered/Resolved]
  - Device difficult to use [Recovered/Resolved]
  - Device issue [Recovered/Resolved]

NARRATIVE: CASE EVENT DATE: 20201001
